FAERS Safety Report 4688333-5 (Version None)
Quarter: 2005Q2

REPORT INFORMATION
  Report Type: 
  Country: None (occurrence: None)
  Receive Date: 20050609
  Receipt Date: 20050601
  Transmission Date: 20051028
  Serious: Yes (Other)
  Sender: FDA-Public Use
  Company Number: 106781ISR

PATIENT
  Age: 56 Year
  Sex: Female

DRUGS (1)
  1. GLATIRAMER ACETATE [Suspect]
     Dosage: 20 MILLIGRAM, SUBCUTANEOUS
     Route: 058

REACTIONS (1)
  - SUBARACHNOID HAEMORRHAGE [None]
